FAERS Safety Report 7323148-0 (Version None)
Quarter: 2011Q1

REPORT INFORMATION
  Report Type: 
  Country: None (occurrence: None)
  Receive Date: 20110301
  Receipt Date: 20110224
  Transmission Date: 20110831
  Serious: Yes (Death, Other)
  Sender: FDA-Public Use
  Company Number: US-GENZYME-FLUD-1000758

PATIENT

DRUGS (17)
  1. MYCOPHENOLATE MOFETIL [Concomitant]
     Indication: PROPHYLAXIS AGAINST GRAFT VERSUS HOST DISEASE
     Dosage: 1 G, BID
     Route: 042
  2. FLUDARA [Suspect]
     Indication: STEM CELL TRANSPLANT
     Dosage: 120 MG/M2, UNK
     Route: 065
  3. CYCLOPHOSPHAMIDE [Concomitant]
     Indication: STEM CELL TRANSPLANT
     Dosage: 60 MG/KG ON DAYS -7 AND -6
  4. TACROLIMUS [Concomitant]
     Indication: PROPHYLAXIS AGAINST GRAFT VERSUS HOST DISEASE
     Dosage: STARTED ON DAY -2
  5. TACROLIMUS [Concomitant]
     Indication: PRODUCT USED FOR UNKNOWN INDICATION
     Dosage: 0.03 MG/KG, QD CONTINUOUS, STARTED DAY -2
     Route: 042
  6. METHOTREXATE [Concomitant]
     Indication: PROPHYLAXIS AGAINST GRAFT VERSUS HOST DISEASE
     Dosage: 15 MG/M2 ON DAY 1
  7. BUSULFAN [Concomitant]
     Indication: STEM CELL TRANSPLANT
     Dosage: 0.8 MG/KG FOR 14 DOSES FROM DAYS -5 TO -2
  8. DEFEROXAMINE MESYLATE [Concomitant]
     Indication: PROPHYLAXIS
     Route: 042
  9. MELPHALAN [Suspect]
     Indication: STEM CELL TRANSPLANT
     Dosage: 140 MG/M2, UNK
     Route: 065
  10. FLUCONAZOLE [Concomitant]
     Indication: PRODUCT USED FOR UNKNOWN INDICATION
  11. GRANULOCYTE COLONY STIMULATING FACTOR [Concomitant]
     Indication: PRODUCT USED FOR UNKNOWN INDICATION
  12. CYCLOPHOSPHAMIDE [Concomitant]
     Indication: ACUTE GRAFT VERSUS HOST DISEASE
  13. ACYCLOVIR [Concomitant]
     Indication: PRODUCT USED FOR UNKNOWN INDICATION
  14. LEVOFLOXACIN [Concomitant]
     Indication: PRODUCT USED FOR UNKNOWN INDICATION
  15. METHYLPREDNISOLONE [Concomitant]
     Indication: PROPHYLAXIS AGAINST GRAFT VERSUS HOST DISEASE
     Dosage: 1 MG/KG, UNK
  16. MYCOPHENOLATE MOFETIL [Concomitant]
     Indication: PRODUCT USED FOR UNKNOWN INDICATION
     Dosage: 1 G, BID, STARTED DAY 0
     Route: 042
  17. ACETYLCYSTEINE [Concomitant]
     Indication: PROPHYLAXIS
     Route: 042

REACTIONS (9)
  - HEPATOTOXICITY [None]
  - IRON OVERLOAD [None]
  - MULTI-ORGAN FAILURE [None]
  - ACUTE GRAFT VERSUS HOST DISEASE IN INTESTINE [None]
  - RESPIRATORY FAILURE [None]
  - BLOOD BILIRUBIN INCREASED [None]
  - CHOLESTASIS [None]
  - RENAL FAILURE [None]
  - ILEUS [None]
